FAERS Safety Report 7274316-8 (Version None)
Quarter: 2011Q1

REPORT INFORMATION
  Report Type: 
  Country: None (occurrence: None)
  Receive Date: 20110131
  Receipt Date: 20110131
  Transmission Date: 20110831
  Serious: No
  Sender: FDA-Public Use
  Company Number: None

PATIENT
  Sex: Male

DRUGS (1)
  1. COLCHICINE [Suspect]

REACTIONS (2)
  - STRESS [None]
  - PRODUCT SUBSTITUTION ISSUE [None]
